FAERS Safety Report 8269252-4 (Version None)
Quarter: 2012Q2

REPORT INFORMATION
  Report Type: 
  Country: None (occurrence: None)
  Receive Date: 20120409
  Receipt Date: 20120330
  Transmission Date: 20120825
  Serious: Yes (Death)
  Sender: FDA-Public Use
  Company Number: US-ROXANE LABORATORIES, INC.-2012-RO-00973RO

PATIENT

DRUGS (9)
  1. VENLAFAXINE [Suspect]
  2. HYDROXYPAM [Suspect]
  3. METHADONE HCL [Suspect]
  4. ALPRAZOLAM [Suspect]
  5. RISPERIDONE [Suspect]
  6. ETHANOL [Suspect]
  7. CYCLOBENAZPRINE [Suspect]
  8. PROMETHAZINE [Suspect]
  9. TRAZODONE HCL [Suspect]

REACTIONS (1)
  - TOXICITY TO VARIOUS AGENTS [None]
